FAERS Safety Report 24914905 (Version 1)
Quarter: 2025Q1

REPORT INFORMATION
  Report Type: Spontaneous
  Country: US (occurrence: US)
  Receive Date: 20250203
  Receipt Date: 20250203
  Transmission Date: 20250409
  Serious: Yes (Other)
  Sender: SUZHOU LIXIN PHARMACEUTICAL
  Company Number: US-LEXENPHARMA (SUZHOU) LIMITED-2025LEX000001

PATIENT
  Age: 54 Year
  Sex: Female

DRUGS (1)
  1. ALBUTEROL [Suspect]
     Active Substance: ALBUTEROL
     Indication: Product used for unknown indication

REACTIONS (1)
  - Lactic acidosis [Unknown]
